FAERS Safety Report 4978982-9 (Version None)
Quarter: 2006Q2

REPORT INFORMATION
  Report Type: 
  Country: None (occurrence: None)
  Receive Date: 20060421
  Receipt Date: 20060410
  Transmission Date: 20061013
  Serious: Yes (Hospitalization)
  Sender: FDA-Public Use
  Company Number: PHRM2006FR01320

PATIENT
  Age: 20 Year
  Sex: Female

DRUGS (5)
  1. LIORESAL [Concomitant]
  2. MYOLASTAN [Concomitant]
  3. DANTRIUM [Concomitant]
  4. IMOVANE [Concomitant]
  5. CLOZAPINE [Suspect]
     Route: 048

REACTIONS (8)
  - DIFFICULTY IN WALKING [None]
  - GENERAL PHYSICAL HEALTH DETERIORATION [None]
  - HYPOKINESIA [None]
  - PROSTRATION [None]
  - PYREXIA [None]
  - SALIVARY HYPERSECRETION [None]
  - SOMNOLENCE [None]
  - VOMITING [None]
